FAERS Safety Report 5521874-7 (Version None)
Quarter: 2007Q4

REPORT INFORMATION
  Report Type: 
  Country: None (occurrence: None)
  Receive Date: 20071115
  Receipt Date: 20071106
  Transmission Date: 20080405
  Serious: Yes (Other)
  Sender: FDA-Public Use
  Company Number: A-JP2007-18396

PATIENT
  Age: 58 Year
  Sex: Female
  Weight: 43 kg

DRUGS (9)
  1. TRACLEER [Suspect]
     Indication: PULMONARY HYPERTENSION
     Dosage: 62.5 MG, BID, ORAL
     Route: 048
     Dates: start: 20060719
  2. RANITIDINE HCL [Suspect]
  3. METHOTREXATE [Suspect]
  4. BERAPROST SODIUM (BERAPROST SODIUM) [Concomitant]
  5. FUROSEMIDE [Concomitant]
  6. SPIRONOLACTONE [Concomitant]
  7. LANSOPRAZOLE [Concomitant]
  8. OXYGEN (OXYGEN) [Concomitant]
  9. NEOPHAGEN (GLYCYRRHIZINATE POTASSIUM) [Concomitant]

REACTIONS (3)
  - CONDITION AGGRAVATED [None]
  - PLATELET COUNT DECREASED [None]
  - WHITE BLOOD CELL COUNT DECREASED [None]
